FAERS Safety Report 6546746-0 (Version None)
Quarter: 2010Q1

REPORT INFORMATION
  Report Type: 
  Country: None (occurrence: None)
  Receive Date: 20100122
  Receipt Date: 20100115
  Transmission Date: 20100710
  Serious: Yes (Death, Hospitalization, Disabling, Other)
  Sender: FDA-Public Use
  Company Number: DE-ROCHE-475263

PATIENT
  Age: 66 Year
  Sex: Female
  Weight: 47 kg

DRUGS (10)
  1. CAPECITABINE [Suspect]
     Dosage: Q1-Q14 EXPIRY DATE/USE DATE: 500: SEPTEMBER 2008, 150 MG: JULY 2008.
     Route: 048
     Dates: start: 20060707, end: 20061108
  2. AMARYL [Concomitant]
     Dosage: UNITS: MG
     Route: 048
     Dates: start: 20061019, end: 20061101
  3. DOMPERIDON [Concomitant]
     Indication: FATIGUE
     Route: 048
     Dates: start: 20060928
  4. PANTOPRAZOLE [Concomitant]
     Route: 048
     Dates: start: 20060301
  5. IBUPROFEN [Concomitant]
     Indication: BONE PAIN
     Route: 048
     Dates: start: 20060301, end: 20061101
  6. AROMASIN [Concomitant]
  7. BELOC-ZOK [Concomitant]
     Indication: HYPERTENSION
     Dosage: FREQUENCY: QD (EVERY DAY)
     Route: 048
     Dates: start: 20060301, end: 20061101
  8. DOLORMIN [Concomitant]
     Indication: PAIN
     Route: 048
     Dates: start: 20050501
  9. PIPERACILLIN [Concomitant]
     Route: 048
  10. SULBACTAM [Concomitant]
     Indication: TRACHEAL OEDEMA
     Dosage: FREQUENCY: 4X
     Route: 055
     Dates: start: 20061101

REACTIONS (6)
  - DEATH [None]
  - OESOPHAGEAL STENOSIS [None]
  - PSEUDOMONAS INFECTION [None]
  - SUPRAVENTRICULAR TACHYCARDIA [None]
  - TRACHEAL STENOSIS [None]
  - TRACHEO-OESOPHAGEAL FISTULA [None]
